FAERS Safety Report 21489661 (Version 2)
Quarter: 2022Q4

REPORT INFORMATION
  Report Type: Report from Study
  Country: US (occurrence: US)
  Receive Date: 20221021
  Receipt Date: 20221101
  Transmission Date: 20230113
  Serious: No
  Sender: FDA-Public Use
  Company Number: US-ABBVIE-4155501

PATIENT
  Sex: Male

DRUGS (5)
  1. IMBRUVICA [Suspect]
     Active Substance: IBRUTINIB
     Indication: Chronic lymphocytic leukaemia
     Route: 048
     Dates: start: 202206, end: 202209
  2. CALQUENCE [Concomitant]
     Active Substance: ACALABRUTINIB
     Indication: Product used for unknown indication
     Route: 048
     Dates: start: 202209
  3. covid-19 vaccine [Concomitant]
     Indication: COVID-19 immunisation
     Dosage: COVID SHOTS?1 IN ONCE
     Route: 030
  4. FLOMAX [Concomitant]
     Active Substance: TAMSULOSIN HYDROCHLORIDE
     Indication: Prostatic disorder
  5. TYLENOL [Concomitant]
     Active Substance: ACETAMINOPHEN
     Indication: Renal disorder

REACTIONS (8)
  - Adverse drug reaction [Unknown]
  - Malaise [Unknown]
  - SARS-CoV-2 test positive [Unknown]
  - Peripheral swelling [Recovering/Resolving]
  - Diarrhoea [Recovered/Resolved]
  - Productive cough [Unknown]
  - Nasal discharge discolouration [Unknown]
  - Sputum discoloured [Unknown]

NARRATIVE: CASE EVENT DATE: 20220101
